FAERS Safety Report 20648952 (Version 1)
Quarter: 2022Q1

REPORT INFORMATION
  Report Type: Spontaneous
  Country: US (occurrence: None)
  Receive Date: 20220329
  Receipt Date: 20220329
  Transmission Date: 20220424
  Serious: Yes (Life-Threatening, Hospitalization)
  Sender: FDA-Public Use
  Company Number: None

PATIENT
  Age: 43 Year
  Sex: Female
  Weight: 54 kg

DRUGS (1)
  1. PERMETHRIN [Suspect]
     Active Substance: PERMETHRIN
     Indication: Acarodermatitis

REACTIONS (8)
  - Feeling abnormal [None]
  - Photopsia [None]
  - Vomiting [None]
  - Dysstasia [None]
  - Gait disturbance [None]
  - Speech disorder [None]
  - Urinary incontinence [None]
  - Brief resolved unexplained event [None]

NARRATIVE: CASE EVENT DATE: 20210801
